FAERS Safety Report 7345623-5 (Version None)
Quarter: 2011Q1

REPORT INFORMATION
  Report Type: 
  Country: None (occurrence: None)
  Receive Date: 20110310
  Receipt Date: 20110308
  Transmission Date: 20110831
  Serious: Yes (Hospitalization, Congenital Anomaly)
  Sender: FDA-Public Use
  Company Number: A0911192A

PATIENT
  Sex: Female

DRUGS (1)
  1. PAXIL [Suspect]
     Indication: DEPRESSION
     Route: 064

REACTIONS (9)
  - PELVIC KIDNEY [None]
  - PTERYGIUM COLLI [None]
  - DRUG EXPOSURE DURING PREGNANCY [None]
  - PILONIDAL CYST CONGENITAL [None]
  - COARCTATION OF THE AORTA [None]
  - LOW SET EARS [None]
  - MITRAL VALVE DISEASE [None]
  - CONGENITAL MITRAL VALVE STENOSIS [None]
  - KIDNEY DUPLEX [None]
